FAERS Safety Report 7987913-9 (Version None)
Quarter: 2011Q4

REPORT INFORMATION
  Report Type: 
  Country: None (occurrence: None)
  Receive Date: 20111216
  Receipt Date: 20101115
  Transmission Date: 20120403
  Serious: No
  Sender: FDA-Public Use
  Company Number: US-BRISTOL-MYERS SQUIBB COMPANY-15387228

PATIENT
  Sex: Female

DRUGS (1)
  1. ABILIFY [Suspect]
     Dosage: STARTED WITH 2MG,INC TO 5MG, DOSE RED TO 2MG

REACTIONS (2)
  - PALPITATIONS [None]
  - JOINT SWELLING [None]
